FAERS Safety Report 11755655 (Version 3)
Quarter: 2019Q2

REPORT INFORMATION
  Report Type: Spontaneous
  Country: AU (occurrence: AU)
  Receive Date: 20151119
  Receipt Date: 20190620
  Transmission Date: 20190711
  Serious: Yes (Life-Threatening, Hospitalization, Other)
  Sender: FDA-Public Use
  Company Number: AU-RB PHARMACEUTICALS LIMITED-INDV-083053-2015

PATIENT
  Age: 20 Year
  Sex: Male

DRUGS (2)
  1. BUPRENORPHINE. [Suspect]
     Active Substance: BUPRENORPHINE
     Indication: DRUG DEPENDENCE
     Dosage: UNK
     Route: 060
  2. BUPRENORPHINE. [Suspect]
     Active Substance: BUPRENORPHINE
     Dosage: UNK
     Route: 042

REACTIONS (6)
  - Intentional product use issue [Unknown]
  - Acute hepatic failure [Recovering/Resolving]
  - Jaundice [Recovering/Resolving]
  - Multiple organ dysfunction syndrome [Recovering/Resolving]
  - Nausea [Unknown]
  - Vomiting [Unknown]
